FAERS Safety Report 4838552-X (Version None)
Quarter: 2005Q4

REPORT INFORMATION
  Report Type: 
  Country: None (occurrence: None)
  Receive Date: 20051123
  Receipt Date: 20051110
  Transmission Date: 20060501
  Serious: Yes (Hospitalization)
  Sender: FDA-Public Use
  Company Number: 200511IM000727

PATIENT
  Age: 54 Year
  Sex: Male

DRUGS (7)
  1. INFERGEN [Suspect]
     Indication: HEPATITIS C
     Dosage: 15 UG, QD, SUBCUTANEOUS
     Route: 058
     Dates: start: 20050301
  2. RIBAVIRIN [Concomitant]
  3. PREVACID [Concomitant]
  4. WELLBUTRIN [Concomitant]
  5. AMBIEN [Concomitant]
  6. TEMAZEPAM [Concomitant]
  7. MICARDIS [Concomitant]

REACTIONS (13)
  - ABDOMINAL ABSCESS [None]
  - AMNESIA [None]
  - APATHY [None]
  - ASTHENIA [None]
  - BODY TEMPERATURE FLUCTUATION [None]
  - CHILLS [None]
  - DEPRESSION [None]
  - DISSOCIATION [None]
  - DYSPNOEA [None]
  - EMOTIONAL DISORDER [None]
  - INSOMNIA [None]
  - MUSCLE SPASMS [None]
  - TENDON DISORDER [None]
